FAERS Safety Report 6496409-5 (Version None)
Quarter: 2009Q4

REPORT INFORMATION
  Report Type: 
  Country: None (occurrence: None)
  Receive Date: 20091125
  Receipt Date: 20081006
  Transmission Date: 20100525
  Serious: Yes (Other)
  Sender: FDA-Public Use
  Company Number: 2008BH010697

PATIENT
  Age: 41 Year
  Sex: Male

DRUGS (1)
  1. DIANEAL [Suspect]
     Indication: PERITONEAL DIALYSIS
     Dosage: 22.5 L;EVERY DAY; IP
     Route: 033
     Dates: start: 20021201

REACTIONS (2)
  - CATHETER SITE INFECTION [None]
  - PERITONITIS BACTERIAL [None]
